FAERS Safety Report 10397022 (Version 1)
Quarter: 2014Q3

REPORT INFORMATION
  Report Type: Spontaneous
  Country: US (occurrence: None)
  Receive Date: 20140819
  Receipt Date: 20140819
  Transmission Date: 20150326
  Serious: Yes (Other)
  Sender: FDA-Public Use
  Company Number: None

PATIENT
  Age: 85 Year
  Sex: Male
  Weight: 51.26 kg

DRUGS (1)
  1. BYSTOLIC [Suspect]
     Active Substance: NEBIVOLOL HYDROCHLORIDE
     Indication: HYPERTENSION
     Dosage: ONCE TABLET
     Route: 048
     Dates: start: 20140104, end: 20140710

REACTIONS (3)
  - Middle insomnia [None]
  - Rash erythematous [None]
  - Discomfort [None]

NARRATIVE: CASE EVENT DATE: 20140710
